FAERS Safety Report 5988876-8 (Version None)
Quarter: 2008Q4

REPORT INFORMATION
  Report Type: 
  Country: None (occurrence: None)
  Receive Date: 20081210
  Receipt Date: 20081127
  Transmission Date: 20090506
  Serious: Yes (Death, Other)
  Sender: FDA-Public Use
  Company Number: GB-GENENTECH-272826

PATIENT
  Age: 46 Year
  Sex: Female

DRUGS (2)
  1. HERCEPTIN [Suspect]
     Indication: BREAST CANCER
     Dosage: 576 MG, UNK
     Route: 042
     Dates: start: 20080407
  2. TAXOTERE [Suspect]
     Indication: BREAST CANCER
     Dosage: 170 MG, UNK
     Route: 042
     Dates: start: 20080408

REACTIONS (3)
  - ABDOMINAL PAIN [None]
  - CARDIAC FAILURE [None]
  - DEATH [None]
